FAERS Safety Report 4598104-6 (Version None)
Quarter: 2005Q1

REPORT INFORMATION
  Report Type: 
  Country: None (occurrence: None)
  Receive Date: 20050204
  Receipt Date: 20040219
  Transmission Date: 20050727
  Serious: Yes (Hospitalization)
  Sender: FDA-Public Use
  Company Number: PHEH2004US02175

PATIENT
  Sex: Female

DRUGS (8)
  1. CLOZARIL [Suspect]
     Indication: SCHIZOPHRENIA
     Dosage: 125 MG, BID, ORAL
     Route: 048
  2. RISPERDAL [Concomitant]
  3. CELEXA [Concomitant]
  4. AMLODIPINE (AMLODIPINE) [Concomitant]
  5. SPIRONOLACTONE [Concomitant]
  6. DESERIL (METHYSERGIDE) [Concomitant]
  7. COMBIVENT [Concomitant]
  8. SINGULAIR ^DIECKMANN^ (MONTELUKAST SODIUM) [Concomitant]

REACTIONS (3)
  - C-REACTIVE PROTEIN INCREASED [None]
  - LEUKOCYTOSIS [None]
  - PYREXIA [None]
